FAERS Safety Report 4765188-1 (Version None)
Quarter: 2005Q3

REPORT INFORMATION
  Report Type: 
  Country: None (occurrence: None)
  Receive Date: 20050906
  Receipt Date: 20050823
  Transmission Date: 20060218
  Serious: Yes (Hospitalization, Other)
  Sender: FDA-Public Use
  Company Number: USA0506100541

PATIENT
  Age: 81 Year
  Sex: Female

DRUGS (12)
  1. FORTEO [Suspect]
     Indication: OSTEOPOROSIS
     Dosage: 20 UG IN THE EVENING
     Dates: start: 20041027
  2. EVISTA [Suspect]
  3. SYNVISC (HYALURONATE SODIUM) [Concomitant]
  4. LEVAQUIN [Concomitant]
  5. ALLEGRA [Concomitant]
  6. PROPOXYPHENE NAPSYLATE W/ ACETAMINOPHEN [Concomitant]
  7. AMBIEN [Concomitant]
  8. ATIVAN [Concomitant]
  9. FLUTICASONE W/SALMETEROL [Concomitant]
  10. NASONEX [Concomitant]
  11. ACETAMINOPHEN [Concomitant]
  12. NIFEREX (POLYSACCHARIDE-IRON COMPLEX) [Concomitant]

REACTIONS (19)
  - ANAEMIA [None]
  - ARTHRALGIA [None]
  - BACTERAEMIA [None]
  - CONSTIPATION [None]
  - DEEP VEIN THROMBOSIS [None]
  - FALL [None]
  - FEMUR FRACTURE [None]
  - FLANK PAIN [None]
  - HYPONATRAEMIA [None]
  - INITIAL INSOMNIA [None]
  - LOWER LIMB DEFORMITY [None]
  - PARAESTHESIA [None]
  - PHARMACEUTICAL PRODUCT COMPLAINT [None]
  - PNEUMONIA [None]
  - RED BLOOD CELLS URINE POSITIVE [None]
  - SPUTUM DISCOLOURED [None]
  - TACHYCARDIA [None]
  - URINARY TRACT INFECTION [None]
  - WALKING AID USER [None]
